FAERS Safety Report 5940804-7 (Version None)
Quarter: 2008Q4

REPORT INFORMATION
  Report Type: 
  Country: None (occurrence: None)
  Receive Date: 20081104
  Receipt Date: 20081028
  Transmission Date: 20090506
  Serious: Yes (Other)
  Sender: FDA-Public Use
  Company Number: US-GENENTECH-270361

PATIENT
  Sex: Female

DRUGS (16)
  1. XOLAIR [Suspect]
     Indication: ASTHMA
  2. NEURONTIN [Concomitant]
     Indication: FIBROMYALGIA
  3. TRAMADOL HCL [Concomitant]
     Indication: ASTHMA
  4. ALBUTEROL [Concomitant]
     Indication: ASTHMA
  5. ATROVENT [Concomitant]
     Indication: ASTHMA
  6. ALLEGRA [Concomitant]
     Indication: HYPERSENSITIVITY
  7. FLONASE [Concomitant]
     Indication: HYPERSENSITIVITY
  8. ZEGERID [Concomitant]
     Indication: GASTROOESOPHAGEAL REFLUX DISEASE
  9. COMBIVENT [Concomitant]
     Indication: ASTHMA
  10. ADVAIR DISKUS 100/50 [Concomitant]
     Indication: ASTHMA
  11. SPIRIVA [Concomitant]
     Indication: ASTHMA
  12. ZANAFLEX [Concomitant]
     Indication: BACK PAIN
  13. NIDRAN [Concomitant]
     Indication: MIGRAINE
  14. LEVAQUIN [Concomitant]
     Indication: BRONCHITIS
  15. VITAMIN D [Concomitant]
     Indication: DRUG USE FOR UNKNOWN INDICATION
  16. MULTI-VITAMIN [Concomitant]
     Indication: DRUG USE FOR UNKNOWN INDICATION

REACTIONS (1)
  - FIBROMYALGIA [None]
